FAERS Safety Report 16209098 (Version 1)
Quarter: 2019Q2

REPORT INFORMATION
  Report Type: Spontaneous
  Country: US (occurrence: US)
  Receive Date: 20190417
  Receipt Date: 20190417
  Transmission Date: 20190711
  Serious: No
  Sender: FDA-Public Use
  Company Number: US-ASTRAZENECA-2019SE43756

PATIENT
  Sex: Male

DRUGS (1)
  1. SYMBICORT [Suspect]
     Active Substance: BUDESONIDE\FORMOTEROL FUMARATE DIHYDRATE
     Indication: COLITIS ULCERATIVE
     Route: 055

REACTIONS (13)
  - Chest injury [Unknown]
  - Back pain [Unknown]
  - Injection site bruising [Unknown]
  - Psoriasis [Unknown]
  - Pruritus [Unknown]
  - Constipation [Unknown]
  - Abdominal distension [Unknown]
  - Injection site nodule [Unknown]
  - Food intolerance [Unknown]
  - Fall [Unknown]
  - Arthritis [Unknown]
  - Fungal oesophagitis [Unknown]
  - Goitre [Unknown]
